FAERS Safety Report 6583049-2 (Version None)
Quarter: 2010Q1

REPORT INFORMATION
  Report Type: 
  Country: None (occurrence: None)
  Receive Date: 20100212
  Receipt Date: 20100212
  Transmission Date: 20100710
  Serious: Yes (Life-Threatening, Hospitalization)
  Sender: FDA-Public Use
  Company Number: None

PATIENT
  Age: 55 Year
  Sex: Male

DRUGS (2)
  1. AMIODARONE [Suspect]
     Indication: HYPERLIPIDAEMIA
     Dosage: 200 MG EVERY DAY PO
     Route: 048
     Dates: start: 20060416, end: 20100106
  2. PRAVASTATIN [Suspect]
     Indication: ATRIAL FIBRILLATION
     Dosage: 80 MG HS PO
     Route: 048
     Dates: start: 20080905, end: 20100106

REACTIONS (10)
  - ALANINE AMINOTRANSFERASE INCREASED [None]
  - ASPARTATE AMINOTRANSFERASE INCREASED [None]
  - BLOOD ALKALINE PHOSPHATASE INCREASED [None]
  - BLOOD BILIRUBIN INCREASED [None]
  - BLOOD LACTATE DEHYDROGENASE INCREASED [None]
  - CHEST PAIN [None]
  - HEPATIC CONGESTION [None]
  - HEPATOTOXICITY [None]
  - INTERNATIONAL NORMALISED RATIO ABNORMAL [None]
  - LIVER INJURY [None]
